FAERS Safety Report 9432046 (Version 1)
Quarter: 2013Q3

REPORT INFORMATION
  Report Type: Spontaneous
  Country: US (occurrence: US)
  Receive Date: 20130731
  Receipt Date: 20130731
  Transmission Date: 20140515
  Serious: Yes (Other)
  Sender: FDA-Public Use
  Company Number: US-BAYER-2013-090428

PATIENT
  Age: 18 Year
  Sex: Female

DRUGS (2)
  1. MIRENA [Suspect]
     Indication: CONTRACEPTION
     Dosage: 20 ?G/D, CONT
     Route: 015
     Dates: start: 20130717
  2. ALEVE CAPLET [Suspect]
     Indication: MUSCLE SPASMS
     Route: 048

REACTIONS (3)
  - Post procedural haemorrhage [None]
  - Abdominal pain lower [Not Recovered/Not Resolved]
  - Drug ineffective [None]
